FAERS Safety Report 16137586 (Version 1)
Quarter: 2019Q2

REPORT INFORMATION
  Report Type: Other
  Country: JP (occurrence: JP)
  Receive Date: 20190401
  Receipt Date: 20190401
  Transmission Date: 20190711
  Serious: Yes (Other)
  Sender: FDA-Public Use
  Company Number: JP-HORMOSAN PHARMA GMBH-2019-01688

PATIENT
  Age: 50 Year
  Sex: Female

DRUGS (1)
  1. QUETIAPINE 25 MG TABLET [Suspect]
     Active Substance: QUETIAPINE FUMARATE
     Indication: PRODUCT USED FOR UNKNOWN INDICATION
     Dosage: UNK
     Route: 065
     Dates: start: 201309, end: 201402

REACTIONS (2)
  - Tardive dyskinesia [Unknown]
  - Dystonia [Unknown]
